FAERS Safety Report 5265445-9 (Version None)
Quarter: 2007Q1

REPORT INFORMATION
  Report Type: 
  Country: None (occurrence: None)
  Receive Date: 20061213
  Receipt Date: 20040923
  Transmission Date: 20070707
  Serious: Yes (Other)
  Sender: FDA-Public Use
  Company Number: 2004UW19831

PATIENT
  Age: 77 Year
  Sex: Female
  Weight: 61.2356 kg

DRUGS (4)
  1. IRESSA [Suspect]
     Indication: NON-SMALL CELL LUNG CANCER
     Dosage: 250 MG PO
     Route: 048
     Dates: start: 20040918
  2. ACCUPRIL [Concomitant]
  3. AMBIEN [Concomitant]
  4. PREDNISONE [Concomitant]

REACTIONS (2)
  - DRY MOUTH [None]
  - EPISTAXIS [None]
